FAERS Safety Report 4642803-4 (Version None)
Quarter: 2005Q2

REPORT INFORMATION
  Report Type: 
  Country: None (occurrence: None)
  Receive Date: 20050421
  Receipt Date: 20050413
  Transmission Date: 20051028
  Serious: Yes (Other)
  Sender: FDA-Public Use
  Company Number: 2005-04-0039

PATIENT
  Age: 60 Year
  Sex: Female

DRUGS (3)
  1. NASONEX [Suspect]
     Indication: NASOPHARYNGITIS
     Dosage: 100 UG NASAL SPRAY
     Route: 045
     Dates: start: 20041202, end: 20041204
  2. LEVOTHYROXINE SODIUM [Concomitant]
  3. CALCIUM CARBONATE/CHOLECALCIFEROL [Concomitant]

REACTIONS (1)
  - ANOSMIA [None]
